FAERS Safety Report 15188902 (Version 1)
Quarter: 2018Q3

REPORT INFORMATION
  Report Type: Spontaneous
  Country: GB (occurrence: GB)
  Receive Date: 20180724
  Receipt Date: 20180724
  Transmission Date: 20181010
  Serious: Yes (Other)
  Sender: FDA-Public Use
  Company Number: GB-TEVA-2018-GB-931351

PATIENT
  Age: 35 Year
  Sex: Female
  Weight: 56 kg

DRUGS (4)
  1. EPIPEN [Concomitant]
     Active Substance: EPINEPHRINE
     Dosage: USE AS DIRECTED
     Dates: start: 20171108
  2. EMERADE [Concomitant]
     Dosage: USE AS DIRECTED
     Dates: start: 20180521, end: 20180522
  3. CO?AMOXICLAV [Suspect]
     Active Substance: AMOXICILLIN\CLAVULANATE POTASSIUM
     Route: 065
     Dates: start: 20180627
  4. DESLORATADINE. [Concomitant]
     Active Substance: DESLORATADINE
     Dosage: 1 DOSAGE FORMS DAILY;
     Route: 065
     Dates: start: 20180521, end: 20180620

REACTIONS (2)
  - Pharyngeal oedema [Recovered/Resolved]
  - Pruritus [Recovered/Resolved]

NARRATIVE: CASE EVENT DATE: 20180627
